FAERS Safety Report 24731278 (Version 1)
Quarter: 2024Q4

REPORT INFORMATION
  Report Type: Report from Study
  Country: US (occurrence: US)
  Receive Date: 20241213
  Receipt Date: 20241213
  Transmission Date: 20250115
  Serious: Yes (Death)
  Sender: NOVARTIS
  Company Number: US-002147023-NVSC2024US234997

PATIENT
  Age: 78 Year
  Sex: Male
  Weight: 108.8 kg

DRUGS (3)
  1. LEQVIO [Suspect]
     Active Substance: INCLISIRAN SODIUM
     Indication: Arteriosclerosis
     Dosage: 284 MG, OTHER (FIRST INJECTION, 3RD INJECTION, EVERY 6 MONTHS THEREAFTER)
     Route: 058
     Dates: start: 20230629
  2. LEQVIO [Suspect]
     Active Substance: INCLISIRAN SODIUM
     Indication: Hyperlipidaemia
  3. LEQVIO [Suspect]
     Active Substance: INCLISIRAN SODIUM
     Indication: Myocardial ischaemia

REACTIONS (3)
  - Oropharyngeal pain [Fatal]
  - Headache [Fatal]
  - Malaise [Fatal]

NARRATIVE: CASE EVENT DATE: 20240827
